FAERS Safety Report 5704176-5 (Version None)
Quarter: 2008Q2

REPORT INFORMATION
  Report Type: 
  Country: None (occurrence: None)
  Receive Date: 20080409
  Receipt Date: 20080229
  Transmission Date: 20081010
  Serious: Yes (Disabling)
  Sender: FDA-Public Use
  Company Number: 2008PV000019

PATIENT
  Age: 78 Year
  Sex: Female
  Weight: 72 kg

DRUGS (22)
  1. CYTARABINE [Suspect]
     Indication: NON-HODGKIN'S LYMPHOMA
     Dosage: 50 MCG; QOW; INTH
     Route: 037
     Dates: start: 20071012, end: 20071114
  2. RITUXIMAB [Concomitant]
  3. IFOSFAMIDE [Concomitant]
  4. CARBOPLATIN [Concomitant]
  5. ETOPOSIDE [Concomitant]
  6. CORTICOSTEROIDS [Concomitant]
  7. COTRIMOXAZOLE [Concomitant]
  8. LEVOTHYROXINE SODIUM [Concomitant]
  9. BETAPACE [Concomitant]
  10. RIVOTRIL [Concomitant]
  11. TERBUTALINE SULFATE [Concomitant]
  12. SYMBICORT [Concomitant]
  13. VALTREX [Concomitant]
  14. TRIFLUCAN [Concomitant]
  15. RITUXIMAB [Concomitant]
  16. CYCLOPHOSPHAMIDE [Concomitant]
  17. DOXORUBICIN HCL [Concomitant]
  18. VINCRISTINE [Concomitant]
  19. PREDNISOLONE [Concomitant]
  20. ARACYTINE [Concomitant]
  21. METHOTREXATE [Concomitant]
  22. HYDROCORTISONE HEMISUCCINATE [Concomitant]

REACTIONS (3)
  - CHOLESTASIS [None]
  - PARAPARESIS [None]
  - SYSTEMIC INFLAMMATORY RESPONSE SYNDROME [None]
